FAERS Safety Report 20004716 (Version 1)
Quarter: 2021Q4

REPORT INFORMATION
  Report Type: Spontaneous
  Country: FR (occurrence: FR)
  Receive Date: 20211027
  Receipt Date: 20211027
  Transmission Date: 20220303
  Serious: Yes (Life-Threatening, Other)
  Sender: FDA-Public Use
  Company Number: None

PATIENT
  Age: 69 Year
  Sex: Male
  Weight: 70 kg

DRUGS (3)
  1. SOLU-MEDROL [Suspect]
     Active Substance: METHYLPREDNISOLONE SODIUM SUCCINATE
     Dosage: 240 MG, 1X/DAY
     Route: 042
     Dates: start: 20210803, end: 20210818
  2. PREDNISOLONE [Suspect]
     Active Substance: PREDNISOLONE
     Indication: Subdural haematoma evacuation
     Dosage: UNK
     Route: 048
     Dates: start: 20210818, end: 20210911
  3. KEPPRA [Suspect]
     Active Substance: LEVETIRACETAM
     Indication: Subdural haematoma evacuation
     Dosage: 1000 MG, 1X/DAY
     Route: 048
     Dates: start: 20210803, end: 20210911

REACTIONS (2)
  - Suicide attempt [Recovered/Resolved]
  - Mania [Recovering/Resolving]

NARRATIVE: CASE EVENT DATE: 20210828
